FAERS Safety Report 13304529 (Version 1)
Quarter: 2017Q1

REPORT INFORMATION
  Report Type: Spontaneous
  Country: US (occurrence: US)
  Receive Date: 20170308
  Receipt Date: 20170308
  Transmission Date: 20170428
  Serious: No
  Sender: FDA-Public Use
  Company Number: US-ASTRAZENECA-2009BM09077

PATIENT
  Age: 10222 Day
  Sex: Female
  Weight: 97.5 kg

DRUGS (5)
  1. EXENATIDE [Concomitant]
     Active Substance: EXENATIDE
  2. BYETTA [Suspect]
     Active Substance: EXENATIDE
     Indication: TYPE 2 DIABETES MELLITUS
     Route: 058
     Dates: start: 2008
  3. BYETTA [Suspect]
     Active Substance: EXENATIDE
     Indication: TYPE 2 DIABETES MELLITUS
     Route: 058
     Dates: start: 2007
  4. BYETTA [Suspect]
     Active Substance: EXENATIDE
     Indication: METABOLIC SYNDROME
     Route: 058
     Dates: start: 2007
  5. BYETTA [Suspect]
     Active Substance: EXENATIDE
     Indication: METABOLIC SYNDROME
     Route: 058
     Dates: start: 2008

REACTIONS (5)
  - Off label use [Not Recovered/Not Resolved]
  - Diarrhoea [Unknown]
  - Abdominal discomfort [Unknown]
  - Drug dose omission [Unknown]
  - Extra dose administered [Recovered/Resolved]

NARRATIVE: CASE EVENT DATE: 20090727
